FAERS Safety Report 6031108-5 (Version None)
Quarter: 2009Q1

REPORT INFORMATION
  Report Type: 
  Country: None (occurrence: None)
  Receive Date: 20090108
  Receipt Date: 20081229
  Transmission Date: 20090719
  Serious: Yes (Other)
  Sender: FDA-Public Use
  Company Number: US-PFIZER INC-2008099121

PATIENT
  Sex: Female
  Weight: 46.7 kg

DRUGS (15)
  1. CHANTIX [Suspect]
     Dates: start: 20080101, end: 20080101
  2. XANAX [Concomitant]
  3. SUCRALFATE [Concomitant]
  4. DETROL LA [Concomitant]
  5. LAMICTAL [Concomitant]
  6. ESTRADIOL [Concomitant]
  7. ADVAIR DISKUS 250/50 [Concomitant]
  8. COMBIVENT [Concomitant]
  9. SOMA [Concomitant]
  10. ALBUTEROL [Concomitant]
  11. LYRICA [Concomitant]
  12. PERCOCET [Concomitant]
  13. ADDERALL 10 [Concomitant]
  14. HYDROXYZINE [Concomitant]
  15. OMEPRAZOLE [Concomitant]

REACTIONS (1)
  - HALLUCINATION, VISUAL [None]
